FAERS Safety Report 8922755 (Version 1)
Quarter: 2012Q4

REPORT INFORMATION
  Report Type: Spontaneous
  Country: GB (occurrence: None)
  Receive Date: 20121109
  Receipt Date: 20121109
  Transmission Date: 20130627
  Serious: Yes (Hospitalization, Other)
  Sender: FDA-Public Use
  Company Number: 2012S1000637

PATIENT
  Age: 15 Year
  Sex: Female
  Weight: 79 kg

DRUGS (10)
  1. CUBICIN [Suspect]
     Indication: INFECTION
     Dates: start: 20120704, end: 20120707
  2. ASPIRIN [Concomitant]
  3. CIPROFLOXACIN [Concomitant]
  4. FUROSEMIDE [Concomitant]
  5. GENTAMICIN [Concomitant]
  6. LINEZOLID [Concomitant]
  7. RIFAMPICIN [Concomitant]
  8. SPRINOLACTONE [Concomitant]
  9. TAZOCIN [Concomitant]
  10. VANCOMYCIN [Concomitant]

REACTIONS (1)
  - Hypersensitivity [None]
